FAERS Safety Report 18095235 (Version 5)
Quarter: 2023Q4

REPORT INFORMATION
  Report Type: Spontaneous
  Country: US (occurrence: US)
  Receive Date: 20200730
  Receipt Date: 20231017
  Transmission Date: 20240110
  Serious: Yes (Other)
  Sender: FDA-Public Use
  Company Number: US-JNJFOC-20200731056

PATIENT
  Age: 48 Year
  Sex: Male

DRUGS (4)
  1. ELMIRON [Suspect]
     Active Substance: PENTOSAN POLYSULFATE SODIUM
     Indication: Cystitis interstitial
     Dosage: 100 MG 3 PILLS 3 TIMES PER DAY=900 MG
     Route: 048
     Dates: start: 19970101, end: 20100101
  2. ULTRAM [Concomitant]
     Active Substance: TRAMADOL HYDROCHLORIDE
     Indication: Pain
     Dates: start: 19980323, end: 20001025
  3. HYDROCODONE BITARTRATE AND ACETAMINOPHEN [Concomitant]
     Active Substance: ACETAMINOPHEN\HYDROCODONE BITARTRATE
     Indication: Pain
     Dates: start: 19970124, end: 19990320
  4. AMBIEN [Concomitant]
     Active Substance: ZOLPIDEM TARTRATE
     Indication: Sleep disorder
     Dates: start: 19960826, end: 20031102

REACTIONS (7)
  - Maculopathy [Unknown]
  - Neovascular age-related macular degeneration [Not Recovered/Not Resolved]
  - Cataract cortical [Unknown]
  - Retinal pigment epitheliopathy [Unknown]
  - Vitreous detachment [Unknown]
  - Off label use [Unknown]
  - Product use issue [Unknown]

NARRATIVE: CASE EVENT DATE: 19970101
